FAERS Safety Report 12654106 (Version 1)
Quarter: 2016Q3

REPORT INFORMATION
  Report Type: Spontaneous
  Country: JP (occurrence: JP)
  Receive Date: 20160816
  Receipt Date: 20160816
  Transmission Date: 20161109
  Serious: Yes (Hospitalization)
  Sender: FDA-Public Use
  Company Number: JP-ROCHE-1814037

PATIENT
  Age: 7 Decade
  Sex: Female

DRUGS (2)
  1. INDERAL [Suspect]
     Active Substance: PROPRANOLOL HYDROCHLORIDE
     Indication: TREMOR
     Dosage: DOSAGE IS UNCERTAIN.
     Route: 048
     Dates: end: 2016
  2. RIVOTRIL [Suspect]
     Active Substance: CLONAZEPAM
     Indication: TREMOR
     Route: 048

REACTIONS (2)
  - Bradycardia [Recovered/Resolved]
  - Off label use [Unknown]

NARRATIVE: CASE EVENT DATE: 20160727
